FAERS Safety Report 5978430-6 (Version None)
Quarter: 2008Q4

REPORT INFORMATION
  Report Type: 
  Country: None (occurrence: None)
  Receive Date: 20081204
  Receipt Date: 20081117
  Transmission Date: 20090506
  Serious: No
  Sender: FDA-Public Use
  Company Number: US-ELI_LILLY_AND_COMPANY-US200811003890

PATIENT
  Sex: Male

DRUGS (1)
  1. CIALIS [Suspect]
     Dosage: UNK, UNKNOWN
     Route: 065
     Dates: start: 20070101

REACTIONS (2)
  - BACK PAIN [None]
  - VISION BLURRED [None]
